FAERS Safety Report 7084578-8 (Version None)
Quarter: 2010Q4

REPORT INFORMATION
  Report Type: 
  Country: None (occurrence: None)
  Receive Date: 20101104
  Receipt Date: 20101025
  Transmission Date: 20110411
  Serious: Yes (Death, Hospitalization, Other)
  Sender: FDA-Public Use
  Company Number: GB-GENENTECH-307397

PATIENT
  Sex: Female

DRUGS (15)
  1. RITUXIMAB [Suspect]
     Indication: RHEUMATOID ARTHRITIS
     Dosage: UNK
     Route: 042
     Dates: start: 20061130, end: 20061130
  2. RITUXIMAB [Suspect]
     Dosage: UNK
     Route: 042
     Dates: start: 20080422, end: 20080422
  3. RITUXIMAB [Suspect]
     Dosage: 1 G, UNK
     Route: 042
     Dates: start: 20090727, end: 20090810
  4. GENTAMICIN [Suspect]
     Indication: PRODUCT USED FOR UNKNOWN INDICATION
     Route: 065
  5. METHOTREXATE [Concomitant]
     Indication: RHEUMATOID ARTHRITIS
     Dosage: UNK
     Dates: start: 20030113, end: 20030414
  6. METHOTREXATE [Concomitant]
     Dosage: 7.5 MG, 1/WEEK
     Route: 048
     Dates: start: 20060530, end: 20070927
  7. METHOTREXATE [Concomitant]
     Dosage: 10 MG, UNK
     Route: 058
     Dates: start: 20080512, end: 20080716
  8. ETANERCEPT [Concomitant]
     Indication: PRODUCT USED FOR UNKNOWN INDICATION
     Dosage: UNK
     Dates: start: 20050411, end: 20050721
  9. ETANERCEPT [Concomitant]
     Dosage: UNK
     Dates: start: 20060202, end: 20061024
  10. ADCAL-D3 [Concomitant]
     Indication: RHEUMATOID ARTHRITIS
     Dosage: 1 DF, BID
     Route: 048
     Dates: start: 20080422
  11. PREDNISOLONE [Concomitant]
     Indication: RHEUMATOID ARTHRITIS
     Dosage: UNK
     Route: 048
     Dates: start: 20010123
  12. ALENDRONIC ACID [Concomitant]
     Indication: RHEUMATOID ARTHRITIS
     Dosage: 70 MG, 1/WEEK
     Route: 048
  13. ATENOLOL [Concomitant]
     Indication: HYPERTENSION
     Route: 048
  14. FOLIC ACID [Concomitant]
     Indication: RHEUMATOID ARTHRITIS
     Dosage: 5 MG, 1/WEEK
     Route: 048
  15. PARACETAMOL [Concomitant]
     Indication: RHEUMATOID ARTHRITIS
     Route: 048

REACTIONS (11)
  - ABSCESS [None]
  - ARTHRALGIA [None]
  - BACTERIAL SEPSIS [None]
  - CEREBROVASCULAR ACCIDENT [None]
  - COLITIS [None]
  - HIATUS HERNIA [None]
  - INCONTINENCE [None]
  - INSOMNIA [None]
  - RASH [None]
  - RHEUMATOID ARTHRITIS [None]
  - SOFT TISSUE INFECTION [None]
